FAERS Safety Report 9443111 (Version 3)
Quarter: 2014Q2

REPORT INFORMATION
  Report Type: Spontaneous
  Country: FR (occurrence: FR)
  Receive Date: 20130806
  Receipt Date: 20140417
  Transmission Date: 20141212
  Serious: Yes (Hospitalization, Other)
  Sender: FDA-Public Use
  Company Number: FR-TEVA-422930ISR

PATIENT
  Age: 50 Year
  Sex: Female

DRUGS (9)
  1. EPIRUBICINE TEVA 2 MG/ML, SOLUTION POUR PERFUSION [Suspect]
     Indication: INVASIVE LOBULAR BREAST CARCINOMA
     Route: 041
     Dates: start: 20130118
  2. EPIRUBICINE TEVA 2 MG/ML, SOLUTION POUR PERFUSION [Suspect]
     Route: 041
     Dates: start: 2013, end: 20130503
  3. ENDOXAN [Suspect]
     Indication: INVASIVE LOBULAR BREAST CARCINOMA
     Route: 041
     Dates: start: 20130118
  4. NORVIR [Suspect]
     Indication: HIV INFECTION
     Dosage: 100 MILLIGRAM DAILY;
     Route: 048
     Dates: start: 20130115, end: 20130127
  5. REYATAZ [Suspect]
     Indication: HIV INFECTION
     Dosage: 300 MILLIGRAM DAILY;
     Route: 048
     Dates: start: 20130115, end: 20130127
  6. TRUVADA [Suspect]
     Indication: HIV INFECTION
     Dosage: 1 TABLET DAILY;
     Route: 048
     Dates: start: 20130115, end: 20130127
  7. VERAPAMIL POSSIBLE TEVA [Concomitant]
     Indication: HYPERTENSION
     Dosage: 240 MILLIGRAM DAILY;
     Route: 048
  8. COKENZEN 8 MG/12,5 MG, COMPRIME [Concomitant]
     Indication: HYPERTENSION
     Dosage: 1 DOSAGE FORMS DAILY; CANDESARTAN 8 MG, HYDROCHLOROTHIAZIDE12,5 MG
     Route: 048
  9. ATARAX [Concomitant]
     Dosage: 2.5 TABLET DAILY; 1.5 TABLET IN THE MORNING, 1 TABLET IN THE EVENING

REACTIONS (12)
  - Renal failure acute [Recovered/Resolved]
  - Cholestasis [Recovered/Resolved]
  - Jaundice [Recovered/Resolved]
  - Pancytopenia [Recovering/Resolving]
  - Mucosal inflammation [Recovered/Resolved]
  - Asthenia [Unknown]
  - Hyponatraemia [Recovered/Resolved]
  - Blood culture positive [Recovered/Resolved]
  - Pyrexia [Recovered/Resolved]
  - Hyperbilirubinaemia [Recovered/Resolved]
  - Hypotension [Unknown]
  - Oral herpes [Unknown]
